FAERS Safety Report 23327958 (Version 1)
Quarter: 2023Q4

REPORT INFORMATION
  Report Type: Spontaneous
  Country: TR (occurrence: TR)
  Receive Date: 20231221
  Receipt Date: 20231221
  Transmission Date: 20240110
  Serious: Yes (Other)
  Sender: FDA-Public Use
  Company Number: TR-CMP PHARMA-2023CMP00080

PATIENT

DRUGS (1)
  1. TRIAMCINOLONE ACETONIDE [Suspect]
     Active Substance: TRIAMCINOLONE ACETONIDE
     Indication: Plasma cell mastitis
     Dosage: 1 MG/KG, EVERY 14 DAYS FOR A TOTAL OF 6 COURSES
     Route: 030

REACTIONS (1)
  - Cataract [Unknown]
